FAERS Safety Report 19895791 (Version 1)
Quarter: 2021Q3

REPORT INFORMATION
  Report Type: Spontaneous
  Country: US (occurrence: US)
  Receive Date: 20210929
  Receipt Date: 20210929
  Transmission Date: 20211014
  Serious: No
  Sender: FDA-Public Use
  Company Number: None

PATIENT
  Age: 52 Year
  Sex: Male
  Weight: 54 kg

DRUGS (1)
  1. FLUDROCORTISONE (FLUDROCORTISONE ACETATE 0.1MG TAB) [Suspect]
     Active Substance: FLUDROCORTISONE ACETATE
     Indication: ORTHOSTATIC HYPOTENSION
     Dates: start: 20200521, end: 20210610

REACTIONS (2)
  - Hypokalaemia [None]
  - Hypomagnesaemia [None]

NARRATIVE: CASE EVENT DATE: 20210610
